FAERS Safety Report 23254261 (Version 1)
Quarter: 2023Q4

REPORT INFORMATION
  Report Type: Spontaneous
  Country: HR (occurrence: HR)
  Receive Date: 20231202
  Receipt Date: 20231202
  Transmission Date: 20240109
  Serious: Yes (Death, Other)
  Sender: FDA-Public Use
  Company Number: HR-JNJFOC-20231170432

PATIENT

DRUGS (1)
  1. IMBRUVICA [Suspect]
     Active Substance: IBRUTINIB
     Indication: Chronic lymphocytic leukaemia
     Route: 048

REACTIONS (15)
  - Cardiac failure [Fatal]
  - Thrombocytopenia [Fatal]
  - Pneumocystis jirovecii pneumonia [Fatal]
  - Laryngeal cancer [Fatal]
  - Deep vein thrombosis [Fatal]
  - Atrial fibrillation [Fatal]
  - Bronchopulmonary aspergillosis [Fatal]
  - Haemorrhage [Fatal]
  - Hypertension [Unknown]
  - Chronic lymphocytic leukaemia [Fatal]
  - Infection [Unknown]
  - Diarrhoea [Unknown]
  - Haemothorax [Fatal]
  - Pneumonia [Fatal]
  - Sepsis [Fatal]
